FAERS Safety Report 8032299-7 (Version None)
Quarter: 2012Q1

REPORT INFORMATION
  Report Type: 
  Country: None (occurrence: None)
  Receive Date: 20120110
  Receipt Date: 20120102
  Transmission Date: 20120608
  Serious: Yes (Hospitalization)
  Sender: FDA-Public Use
  Company Number: FR-BRISTOL-MYERS SQUIBB COMPANY-16329104

PATIENT
  Age: 73 Year
  Sex: Male

DRUGS (8)
  1. MEDIATENSYL [Concomitant]
  2. SYMBICORT [Concomitant]
  3. DILTIAZEM HCL [Concomitant]
  4. NEXIUM [Concomitant]
  5. PRAXILENE [Concomitant]
  6. SPIRIVA [Concomitant]
  7. COUMADIN [Suspect]
     Dosage: ON 19-JAN-2010:COUMADINE 4 MG/D,
     Route: 048
     Dates: end: 20100108
  8. DEBRIDAT [Concomitant]

REACTIONS (2)
  - MELAENA [None]
  - ANAEMIA [None]
